FAERS Safety Report 7700295-2 (Version None)
Quarter: 2011Q3

REPORT INFORMATION
  Report Type: 
  Country: None (occurrence: None)
  Receive Date: 20110822
  Receipt Date: 20110808
  Transmission Date: 20111222
  Serious: Yes (Other)
  Sender: FDA-Public Use
  Company Number: PHHY2011US54218

PATIENT
  Sex: Female

DRUGS (7)
  1. LAMICTAL [Concomitant]
     Indication: BIPOLAR DISORDER
     Dosage: UNK UKN, UNK
  2. ZYPREXA [Concomitant]
     Dosage: UNK UKN, UNK
  3. XANAX [Concomitant]
     Dosage: UNK UKN, UNK
  4. SINGULAIR [Concomitant]
     Dosage: UNK UKN, UNK
  5. ZOLOFT [Concomitant]
     Dosage: UNK UKN, UNK
  6. GILENYA [Suspect]
     Indication: MULTIPLE SCLEROSIS
     Dosage: 0.5 MG, QD
     Route: 048
     Dates: start: 20110615
  7. RISPERDAL [Concomitant]
     Dosage: UNK UKN, UNK

REACTIONS (10)
  - CENTRAL NERVOUS SYSTEM LESION [None]
  - NAUSEA [None]
  - BLOOD PRESSURE DECREASED [None]
  - DIZZINESS [None]
  - FATIGUE [None]
  - HEART RATE DECREASED [None]
  - ABDOMINAL DISCOMFORT [None]
  - EYE PRURITUS [None]
  - SOMNOLENCE [None]
  - HEADACHE [None]
